FAERS Safety Report 6832260-1 (Version None)
Quarter: 2010Q3

REPORT INFORMATION
  Report Type: 
  Country: None (occurrence: None)
  Receive Date: 20100712
  Receipt Date: 20100709
  Transmission Date: 20110219
  Serious: Yes (Life-Threatening)
  Sender: FDA-Public Use
  Company Number: DE-ASTRAZENECA-2010SE31892

PATIENT
  Age: 73 Year
  Sex: Female
  Weight: 70 kg

DRUGS (3)
  1. PROPOFOL [Suspect]
     Indication: UTERINE CERVICAL EROSION
     Route: 042
     Dates: start: 20100616
  2. SUFENTANIL [Concomitant]
     Indication: UTERINE CERVICAL EROSION
     Route: 042
     Dates: start: 20100616
  3. BERLOSIN [Concomitant]
     Indication: POSTOPERATIVE ANALGESIA
     Route: 042
     Dates: start: 20100616

REACTIONS (1)
  - PANCREATITIS ACUTE [None]
